FAERS Safety Report 13121338 (Version 3)
Quarter: 2017Q2

REPORT INFORMATION
  Report Type: Spontaneous
  Country: US (occurrence: US)
  Receive Date: 20170117
  Receipt Date: 20170405
  Transmission Date: 20170830
  Serious: Yes (Hospitalization, Other)
  Sender: FDA-Public Use
  Company Number: US-INCYTE CORPORATION-2017IN000108

PATIENT
  Age: 70 Year
  Sex: Female

DRUGS (2)
  1. JAKAFI [Suspect]
     Active Substance: RUXOLITINIB
     Indication: MYELOFIBROSIS
     Dosage: 15 MG, FOUR DAYS A WEEK ONCE A DAY
     Route: 048
     Dates: start: 20161109
  2. JAKAFI [Suspect]
     Active Substance: RUXOLITINIB
     Dosage: 15 MG/DAY ALTERNATING WITH 30 MG/DAY
     Route: 048

REACTIONS (5)
  - Jaundice [Unknown]
  - Liver disorder [Unknown]
  - Blood bilirubin increased [Unknown]
  - Skin discolouration [Unknown]
  - Bile duct obstruction [Unknown]

NARRATIVE: CASE EVENT DATE: 20161223
